FAERS Safety Report 12585695 (Version 1)
Quarter: 2016Q3

REPORT INFORMATION
  Report Type: Spontaneous
  Country: FR (occurrence: FR)
  Receive Date: 20160725
  Receipt Date: 20160725
  Transmission Date: 20161109
  Serious: Yes (Hospitalization)
  Sender: FDA-Public Use
  Company Number: FR-UCBSA-2016025442

PATIENT
  Age: 9 Year
  Sex: Female
  Weight: 33 kg

DRUGS (5)
  1. KEPPRA [Suspect]
     Active Substance: LEVETIRACETAM
     Indication: EPILEPSY
     Dosage: 700 MG, 2X/DAY (BID)
     Dates: start: 20160127, end: 2016
  2. DEPAKINE [Suspect]
     Active Substance: VALPROATE SODIUM
     Indication: EPILEPSY
     Dosage: 300 MG, 2X/DAY (BID)
     Dates: start: 20140910
  3. DEPAKINE [Suspect]
     Active Substance: VALPROATE SODIUM
     Dosage: 400 MG DAILY
     Dates: start: 2016, end: 20160620
  4. KEPPRA [Suspect]
     Active Substance: LEVETIRACETAM
     Dosage: 750 MG, 2X/DAY (BID)
     Dates: start: 201603, end: 20160708
  5. DEPAKINE [Suspect]
     Active Substance: VALPROATE SODIUM
     Dosage: 500 MG, 2X/DAY (BID)

REACTIONS (3)
  - Hyperammonaemia [Recovered/Resolved]
  - Hepatic lesion [Recovered/Resolved]
  - Epilepsy [Recovering/Resolving]

NARRATIVE: CASE EVENT DATE: 2016
